FAERS Safety Report 17364378 (Version 1)
Quarter: 2020Q1

REPORT INFORMATION
  Report Type: Spontaneous
  Country: PT (occurrence: PT)
  Receive Date: 20200204
  Receipt Date: 20200204
  Transmission Date: 20200409
  Serious: Yes (Disabling)
  Sender: FDA-Public Use
  Company Number: PT-B.I. PHARMACEUTICALS,INC./RIDGEFIELD-2020-12-004943

PATIENT
  Age: 81 Year
  Sex: Female

DRUGS (2)
  1. BUDESONIDA [Suspect]
     Active Substance: BUDESONIDE
     Indication: PRODUCT USED FOR UNKNOWN INDICATION
     Route: 055
     Dates: start: 20200101, end: 20200103
  2. ATROVENT PA [Suspect]
     Active Substance: IPRATROPIUM BROMIDE
     Indication: CHRONIC OBSTRUCTIVE PULMONARY DISEASE
     Dosage: 2 PUFFS 3 VEZES AO DIA 7 DIAS, DEPOIS EM SOS
     Route: 055
     Dates: start: 20200101, end: 20200103

REACTIONS (5)
  - Glossitis [Recovered/Resolved]
  - Stomatitis [Recovered/Resolved]
  - Lip infection [Recovered/Resolved]
  - Pharyngeal inflammation [Recovered/Resolved]
  - Lip oedema [Recovered/Resolved]

NARRATIVE: CASE EVENT DATE: 20200102
